FAERS Safety Report 7501771-8 (Version None)
Quarter: 2011Q2

REPORT INFORMATION
  Report Type: 
  Country: None (occurrence: None)
  Receive Date: 20110523
  Receipt Date: 20110523
  Transmission Date: 20111010
  Serious: Yes (Hospitalization)
  Sender: FDA-Public Use
  Company Number: None

PATIENT
  Age: 80 Year
  Sex: Female
  Weight: 88.7 kg

DRUGS (22)
  1. PLAVIX [Suspect]
     Indication: CORONARY ARTERY DISEASE
     Dosage: 75MG DAILY PO CHRONIC
     Route: 048
  2. ASPIRIN [Suspect]
     Indication: CORONARY ARTERY DISEASE
     Dosage: 81MG DAILY PO CHRONIC
     Route: 048
  3. CALCIUM CARBONATE [Concomitant]
  4. LOVAZA [Concomitant]
  5. XANAX [Concomitant]
  6. LEVOTHYROXINE SODIUM [Concomitant]
  7. OMEPRAZOLE [Concomitant]
  8. INDOCIN [Suspect]
     Indication: GOUT
     Dosage: 25MG TID PRN PO CHRONIC
     Route: 048
  9. CRANBERRY [Concomitant]
  10. METHADONE HCL [Concomitant]
  11. CINNAMON [Concomitant]
  12. DOXISIN [Concomitant]
  13. UBIQUINONE [Concomitant]
  14. CLONIDINE [Concomitant]
  15. LABETOL [Concomitant]
  16. PENICILLIN [Concomitant]
  17. TRIPLE PLEX [Concomitant]
  18. POTASSIUM CHLORIDE [Concomitant]
  19. GARLIC OIL [Concomitant]
  20. VOLTOREN [Concomitant]
  21. VITPIZ [Concomitant]
  22. LASIX [Concomitant]

REACTIONS (6)
  - LARGE INTESTINAL ULCER [None]
  - LOWER GASTROINTESTINAL HAEMORRHAGE [None]
  - ACQUIRED OESOPHAGEAL WEB [None]
  - HYPOTENSION [None]
  - HIATUS HERNIA [None]
  - RENAL FAILURE [None]
